FAERS Safety Report 4473328-7 (Version None)
Quarter: 2004Q4

REPORT INFORMATION
  Report Type: 
  Country: None (occurrence: None)
  Receive Date: 20041008
  Receipt Date: 20040930
  Transmission Date: 20050328
  Serious: Yes (Hospitalization)
  Sender: FDA-Public Use
  Company Number: DE-2004-032811

PATIENT

DRUGS (1)
  1. MAGNEVIST [Suspect]
     Indication: NUCLEAR MAGNETIC RESONANCE IMAGING
     Dosage: 1 DOSE,

REACTIONS (6)
  - BACTERAEMIA [None]
  - BODY TEMPERATURE INCREASED [None]
  - CARDIOVASCULAR DISORDER [None]
  - HYPERSENSITIVITY [None]
  - RENAL FAILURE ACUTE [None]
  - SEPSIS [None]
